APPROVED DRUG PRODUCT: CEFPODOXIME PROXETIL
Active Ingredient: CEFPODOXIME PROXETIL
Strength: EQ 50MG BASE/5ML
Dosage Form/Route: FOR SUSPENSION;ORAL
Application: A065082 | Product #001
Applicant: SUN PHARMACEUTICAL INDUSTRIES LTD
Approved: May 31, 2002 | RLD: No | RS: No | Type: DISCN